FAERS Safety Report 4485254-8 (Version None)
Quarter: 2004Q4

REPORT INFORMATION
  Report Type: 
  Country: None (occurrence: None)
  Receive Date: 20041021
  Receipt Date: 20041021
  Transmission Date: 20050328
  Serious: Yes (Life-Threatening, Hospitalization, Disabling)
  Sender: FDA-Public Use
  Company Number: None

PATIENT
  Sex: Female

DRUGS (1)
  1. PERMAX [Suspect]
     Indication: RESTLESS LEGS SYNDROME
     Dosage: 2 MG/DAY   ORAL, AS NEEDS
     Route: 048

REACTIONS (6)
  - DEPRESSION [None]
  - ECONOMIC PROBLEM [None]
  - FAMILY STRESS [None]
  - MEDICATION ERROR [None]
  - PATHOLOGICAL GAMBLING [None]
  - SUICIDAL IDEATION [None]
